FAERS Safety Report 10641067 (Version 1)
Quarter: 2014Q4

REPORT INFORMATION
  Report Type: Spontaneous
  Country: US (occurrence: None)
  Receive Date: 20141208
  Receipt Date: 20141208
  Transmission Date: 20150529
  Serious: Yes (Hospitalization)
  Sender: FDA-Public Use
  Company Number: None

PATIENT
  Age: 58 Year
  Sex: Male
  Weight: 99.7 kg

DRUGS (1)
  1. CARBAZEPINE [Suspect]
     Active Substance: CARBAMAZEPINE
     Indication: BIPOLAR I DISORDER
     Route: 048
     Dates: start: 20140813, end: 20140905

REACTIONS (7)
  - Headache [None]
  - Nausea [None]
  - Chills [None]
  - Pyrexia [None]
  - Temporal arteritis [None]
  - Retching [None]
  - Dizziness postural [None]

NARRATIVE: CASE EVENT DATE: 20140910
